FAERS Safety Report 6688547-9 (Version None)
Quarter: 2010Q2

REPORT INFORMATION
  Report Type: 
  Country: None (occurrence: None)
  Receive Date: 20100420
  Receipt Date: 20100413
  Transmission Date: 20101027
  Serious: Yes (Other)
  Sender: FDA-Public Use
  Company Number: US-SANOFI-AVENTIS-2010SA015021

PATIENT
  Age: 58 Year
  Sex: Female
  Weight: 72.57 kg

DRUGS (3)
  1. LANTUS [Suspect]
     Dosage: DOSE:95 UNIT(S)
     Route: 058
     Dates: start: 20040101
  2. OPTICLICK [Suspect]
     Dates: start: 20070101
  3. JANUVIA [Concomitant]
     Dosage: 1 PILL

REACTIONS (1)
  - MACULAR DEGENERATION [None]
